FAERS Safety Report 13268760 (Version 1)
Quarter: 2017Q1

REPORT INFORMATION
  Report Type: Spontaneous
  Country: US (occurrence: US)
  Receive Date: 20170224
  Receipt Date: 20170224
  Transmission Date: 20170428
  Serious: Yes (Hospitalization)
  Sender: FDA-Public Use
  Company Number: US-ELI_LILLY_AND_COMPANY-US201607010638

PATIENT
  Sex: Female

DRUGS (7)
  1. CYMBALTA [Suspect]
     Active Substance: DULOXETINE HYDROCHLORIDE
     Dosage: 60 MG, BID
     Route: 048
     Dates: end: 20150821
  2. CYMBALTA [Suspect]
     Active Substance: DULOXETINE HYDROCHLORIDE
     Indication: PRODUCT USED FOR UNKNOWN INDICATION
     Dosage: UNK UNK, UNKNOWN
     Route: 048
  3. LAMICTAL [Suspect]
     Active Substance: LAMOTRIGINE
     Indication: MOOD SWINGS
     Dosage: UNK, UNKNOWN
     Route: 065
     Dates: end: 20150801
  4. NALTREXONE [Concomitant]
     Active Substance: NALTREXONE
     Dosage: 50 MG, QD
  5. TRAZODONE [Concomitant]
     Active Substance: TRAZODONE HYDROCHLORIDE
     Dosage: 100 MG, UNKNOWN
  6. WELLBUTRIN [Concomitant]
     Active Substance: BUPROPION HYDROCHLORIDE
     Dosage: 200 MG, QD
  7. TOPAMAX [Concomitant]
     Active Substance: TOPIRAMATE
     Dosage: 50 MG, BID
     Route: 048

REACTIONS (10)
  - Suicidal ideation [Unknown]
  - Dysphoria [Unknown]
  - Insomnia [Unknown]
  - Headache [Unknown]
  - Affect lability [Unknown]
  - Anxiety [Recovered/Resolved]
  - Sensory disturbance [Unknown]
  - Drug ineffective [Unknown]
  - Drug withdrawal syndrome [Unknown]
  - Nausea [Unknown]
